FAERS Safety Report 4723771-3 (Version None)
Quarter: 2005Q3

REPORT INFORMATION
  Report Type: 
  Country: None (occurrence: None)
  Receive Date: 20050725
  Receipt Date: 20050713
  Transmission Date: 20060218
  Serious: Yes (Hospitalization)
  Sender: FDA-Public Use
  Company Number: JP-JNJFOC-20050605902

PATIENT
  Sex: Male

DRUGS (3)
  1. ITRIZOLE [Suspect]
     Indication: CANDIDA PNEUMONIA
     Route: 048
     Dates: start: 20050502, end: 20050516
  2. FOSFLUCONAZOLE [Suspect]
     Indication: CANDIDA PNEUMONIA
     Route: 065
     Dates: start: 20050414, end: 20050501
  3. FLUCONAZOLE [Concomitant]
     Indication: CANDIDA PNEUMONIA
     Route: 065
     Dates: start: 20050403, end: 20050413

REACTIONS (1)
  - RENAL FAILURE ACUTE [None]
